FAERS Safety Report 4692808-2 (Version None)
Quarter: 2005Q2

REPORT INFORMATION
  Report Type: 
  Country: None (occurrence: None)
  Receive Date: 20050617
  Receipt Date: 20050610
  Transmission Date: 20051028
  Serious: Yes (Hospitalization, Other)
  Sender: FDA-Public Use
  Company Number: 2005PK01018

PATIENT
  Age: 20976 Day
  Sex: Male
  Weight: 81.4 kg

DRUGS (6)
  1. ZD1839 [Suspect]
     Indication: NON-SMALL CELL LUNG CANCER
     Route: 048
     Dates: start: 20050520, end: 20050525
  2. DIGIMERCK [Concomitant]
     Indication: CARDIAC FAILURE
  3. ISOPTIN [Concomitant]
     Indication: HYPERTENSION
  4. PANTOPRAZOLE SODIUM [Concomitant]
     Indication: PROPHYLAXIS AGAINST GASTROINTESTINAL ULCER
  5. MST [Concomitant]
     Indication: PAIN
  6. DICODID [Concomitant]
     Indication: COUGH

REACTIONS (8)
  - ANAEMIA [None]
  - ATELECTASIS [None]
  - BRONCHOPNEUMONIA [None]
  - DISEASE PROGRESSION [None]
  - GENERAL PHYSICAL HEALTH DETERIORATION [None]
  - HAEMOPTYSIS [None]
  - TACHYPNOEA [None]
  - THROMBOCYTOPENIA [None]
